FAERS Safety Report 7552896-2 (Version None)
Quarter: 2011Q2

REPORT INFORMATION
  Report Type: 
  Country: None (occurrence: None)
  Receive Date: 20110616
  Receipt Date: 20101108
  Transmission Date: 20111010
  Serious: No
  Sender: FDA-Public Use
  Company Number: US-ASTRAZENECA-2010SE52879

PATIENT
  Age: 60 Year
  Sex: Female

DRUGS (1)
  1. FASLODEX [Suspect]
     Indication: BREAST CANCER
     Route: 030
     Dates: start: 20100930, end: 20101014

REACTIONS (8)
  - APHAGIA [None]
  - WEIGHT DECREASED [None]
  - ABDOMINAL DISTENSION [None]
  - FATIGUE [None]
  - ABDOMINAL PAIN UPPER [None]
  - ABDOMINAL HERNIA [None]
  - GAIT DISTURBANCE [None]
  - PAIN IN EXTREMITY [None]
